FAERS Safety Report 13737830 (Version 1)
Quarter: 2017Q3

REPORT INFORMATION
  Report Type: Spontaneous
  Country: US (occurrence: US)
  Receive Date: 20170710
  Receipt Date: 20170710
  Transmission Date: 20171127
  Serious: Yes (Life-Threatening, Hospitalization, Other)
  Sender: FDA-Public Use
  Company Number: US-SAOL THERAPEUTICS-2016SAO00530

PATIENT
  Age: 36 Year
  Sex: Female

DRUGS (4)
  1. BOTOX [Concomitant]
     Active Substance: ONABOTULINUMTOXINA
     Dosage: UNKNOWN
  2. LIORESAL [Suspect]
     Active Substance: BACLOFEN
     Dosage: 945.2 ?G, \DAY
     Route: 037
  3. GABLOFEN [Suspect]
     Active Substance: BACLOFEN
     Route: 037
  4. LIORESAL [Suspect]
     Active Substance: BACLOFEN
     Indication: PAIN
     Dosage: 1050.3 ?G, \DAY
     Route: 037

REACTIONS (10)
  - Device infusion issue [Unknown]
  - Hypotonia [Recovering/Resolving]
  - Pneumonia [Recovering/Resolving]
  - Overdose [Recovering/Resolving]
  - Hypotension [Recovering/Resolving]
  - Hypertonia [Recovering/Resolving]
  - Muscle spasticity [Recovering/Resolving]
  - Off label use [Unknown]
  - Respiratory depression [Recovering/Resolving]
  - Muscle tightness [Recovering/Resolving]

NARRATIVE: CASE EVENT DATE: 201606
